FAERS Safety Report 4880067-7 (Version None)
Quarter: 2006Q1

REPORT INFORMATION
  Report Type: 
  Country: None (occurrence: None)
  Receive Date: 20060113
  Receipt Date: 20051202
  Transmission Date: 20060701
  Serious: Yes (Other)
  Sender: FDA-Public Use
  Company Number: GB-BRISTOL-MYERS SQUIBB COMPANY-13204193

PATIENT
  Age: 49 Year
  Sex: Male

DRUGS (3)
  1. ABILIFY [Suspect]
     Route: 048
     Dates: start: 20050101
  2. LEVOTHYROXINE SODIUM [Concomitant]
     Indication: HYPOTHYROIDISM
  3. METFORMIN HCL [Concomitant]
     Indication: DIABETES MELLITUS
     Route: 048
     Dates: start: 20010126

REACTIONS (5)
  - BLOOD PRESSURE INCREASED [None]
  - RASH [None]
  - SEXUAL DYSFUNCTION [None]
  - TREMOR [None]
  - WEIGHT INCREASED [None]
